FAERS Safety Report 5664141-3 (Version None)
Quarter: 2008Q1

REPORT INFORMATION
  Report Type: 
  Country: None (occurrence: None)
  Receive Date: 20080312
  Receipt Date: 20080225
  Transmission Date: 20080703
  Serious: Yes (Hospitalization)
  Sender: FDA-Public Use
  Company Number: 230764J08USA

PATIENT
  Age: 55 Year
  Sex: Female

DRUGS (2)
  1. REBIF [Suspect]
     Indication: MULTIPLE SCLEROSIS
     Dosage: 44 MCG, 3 IN 1 WEEKS, SUBCUTANEOUS
     Route: 058
     Dates: start: 20050101, end: 20080114
  2. VYTORIN [Concomitant]

REACTIONS (14)
  - ABASIA [None]
  - ACTIVITIES OF DAILY LIVING IMPAIRED [None]
  - APHASIA [None]
  - BLADDER DISORDER [None]
  - BLOOD PRESSURE DECREASED [None]
  - BRAIN OEDEMA [None]
  - CARDIAC FAILURE CONGESTIVE [None]
  - DIALYSIS [None]
  - KIDNEY INFECTION [None]
  - OXYGEN SATURATION DECREASED [None]
  - PNEUMONIA [None]
  - POOR VENOUS ACCESS [None]
  - RENAL IMPAIRMENT [None]
  - THROMBOTIC THROMBOCYTOPENIC PURPURA [None]
